FAERS Safety Report 21374092 (Version 1)
Quarter: 2022Q3

REPORT INFORMATION
  Report Type: Spontaneous
  Country: US (occurrence: US)
  Receive Date: 20220926
  Receipt Date: 20220926
  Transmission Date: 20221027
  Serious: Yes (Other)
  Sender: FDA-Public Use
  Company Number: US-GLAXOSMITHKLINE-US2022135674

PATIENT
  Sex: Female

DRUGS (1)
  1. LAMICTAL [Suspect]
     Active Substance: LAMOTRIGINE
     Indication: Seizure
     Dosage: 200 MG, QID, 4 TIMES DAILY

REACTIONS (3)
  - Seizure [Unknown]
  - Radiotherapy to brain [Unknown]
  - Scar [Unknown]
